FAERS Safety Report 12059194 (Version 1)
Quarter: 2016Q1

REPORT INFORMATION
  Report Type: Spontaneous
  Country: GB (occurrence: None)
  Receive Date: 20160209
  Receipt Date: 20160209
  Transmission Date: 20160526
  Serious: Yes (Disabling)
  Sender: FDA-Public Use
  Company Number: None

PATIENT
  Age: 16 Year
  Sex: Male
  Weight: 180 kg

DRUGS (6)
  1. OMEPRAZOLE 20MG BRISTOL [Suspect]
     Active Substance: OMEPRAZOLE
     Indication: GASTROOESOPHAGEAL REFLUX DISEASE
     Route: 048
  2. OMEPRAZOLE 20MG BRISTOL [Suspect]
     Active Substance: OMEPRAZOLE
     Indication: EOSINOPHILIC OESOPHAGITIS
     Route: 048
  3. SODIUM DOCUSATE [Concomitant]
     Active Substance: DOCUSATE SODIUM
  4. RANITIDINE [Concomitant]
     Active Substance: RANITIDINE\RANITIDINE HYDROCHLORIDE
  5. FLUOXETINE [Concomitant]
     Active Substance: FLUOXETINE HYDROCHLORIDE
  6. VITAMINS [Concomitant]
     Active Substance: VITAMINS

REACTIONS (13)
  - General physical health deterioration [None]
  - Bedridden [None]
  - Chest pain [None]
  - Blister [None]
  - Laceration [None]
  - Mental disorder [None]
  - Headache [None]
  - Weight increased [None]
  - Dyspnoea [None]
  - Contusion [None]
  - Hyperhidrosis [None]
  - Constipation [None]
  - Mood altered [None]
